FAERS Safety Report 17011706 (Version 2)
Quarter: 2019Q4

REPORT INFORMATION
  Report Type: Spontaneous
  Country: BE (occurrence: BE)
  Receive Date: 20191108
  Receipt Date: 20191127
  Transmission Date: 20200122
  Serious: Yes (Hospitalization)
  Sender: FDA-Public Use
  Company Number: BE-009507513-1911BEL001378

PATIENT
  Age: 87 Year
  Sex: Female

DRUGS (2)
  1. SIMVASTATIN. [Suspect]
     Active Substance: SIMVASTATIN
     Indication: HYPERCHOLESTEROLAEMIA
     Dosage: UNK
     Route: 065
  2. ITRACONAZOLE. [Suspect]
     Active Substance: ITRACONAZOLE
     Indication: ONYCHOMYCOSIS
     Dosage: UNK (TAKEN 1 WEEK / NOT TAKEN 3 WEEKS)
     Route: 065

REACTIONS (4)
  - Contraindicated product administered [Unknown]
  - Nausea [Recovering/Resolving]
  - Asthenia [Recovering/Resolving]
  - Hypertension [Recovering/Resolving]
